FAERS Safety Report 14181364 (Version 8)
Quarter: 2018Q2

REPORT INFORMATION
  Report Type: Spontaneous
  Country: US (occurrence: US)
  Receive Date: 20171113
  Receipt Date: 20180528
  Transmission Date: 20180711
  Serious: Yes (Hospitalization, Congenital Anomaly, Other)
  Sender: FDA-Public Use
  Company Number: PHEH2017US036595

PATIENT
  Sex: Male

DRUGS (2)
  1. ZOFRAN [Suspect]
     Active Substance: ONDANSETRON HYDROCHLORIDE
     Indication: FOETAL EXPOSURE DURING PREGNANCY
     Dosage: MOHER DOSE: 04 MG, Q6H
     Route: 064
  2. ZOFRAN [Suspect]
     Active Substance: ONDANSETRON HYDROCHLORIDE
     Indication: FOETAL EXPOSURE DURING PREGNANCY
     Dosage: MOHER DOSE: 04 MG, Q6H
     Route: 064

REACTIONS (26)
  - Syncope [Unknown]
  - Congenital flat feet [Unknown]
  - Strabismus [Unknown]
  - Joint injury [Unknown]
  - Cough [Unknown]
  - Gastroenteritis [Unknown]
  - Talipes [Unknown]
  - Onychogryphosis [Unknown]
  - Choking [Unknown]
  - Diarrhoea haemorrhagic [Unknown]
  - Headache [Unknown]
  - Flank pain [Recovered/Resolved]
  - Herpes zoster [Unknown]
  - Cleft lip [Unknown]
  - Haematochezia [Unknown]
  - Bronchiolitis [Unknown]
  - Foetal exposure during pregnancy [Unknown]
  - Road traffic accident [Unknown]
  - Seizure [Recovered/Resolved]
  - Arthralgia [Unknown]
  - Erythema [Unknown]
  - Pain in extremity [Unknown]
  - Back pain [Unknown]
  - Pneumonia [Unknown]
  - Pyrexia [Unknown]
  - Hyperhidrosis [Unknown]

NARRATIVE: CASE EVENT DATE: 20160707
